FAERS Safety Report 6270896-X (Version None)
Quarter: 2009Q3

REPORT INFORMATION
  Report Type: 
  Country: None (occurrence: None)
  Receive Date: 20090716
  Receipt Date: 20090709
  Transmission Date: 20100115
  Serious: Yes (Other)
  Sender: FDA-Public Use
  Company Number: US-WYE-H10095309

PATIENT
  Age: 59 Year
  Sex: Female
  Weight: 90.8 kg

DRUGS (8)
  1. ADVIL [Suspect]
     Indication: MYALGIA
     Dosage: 2 CAPSULES X 1
     Route: 048
     Dates: start: 20090708, end: 20090708
  2. ADVIL [Suspect]
     Indication: ARTHRALGIA
  3. SYMBICORT [Concomitant]
     Indication: CHRONIC OBSTRUCTIVE PULMONARY DISEASE
     Dosage: UNKNOWN
     Route: 065
  4. TRIAMTERENE AND HYDROCHLOROTHIAZIDE [Concomitant]
     Indication: HYPERTENSION
     Dosage: UNKNOWN
     Route: 048
  5. LEVOTHYROXINE SODIUM [Concomitant]
     Indication: THYROID DISORDER
     Dosage: UNKNOWN
     Route: 048
  6. SPIRIVA [Concomitant]
     Indication: CHRONIC OBSTRUCTIVE PULMONARY DISEASE
     Dosage: UNKNOWN
     Route: 065
  7. TENORMIN [Concomitant]
     Indication: HYPERTENSION
     Dosage: UNKNOWN
     Route: 048
  8. XANAX [Concomitant]
     Dosage: UNKNOWN
     Route: 048

REACTIONS (4)
  - AURICULAR SWELLING [None]
  - ERYTHEMA [None]
  - SWELLING FACE [None]
  - URTICARIA [None]
